FAERS Safety Report 14151322 (Version 1)
Quarter: 2017Q4

REPORT INFORMATION
  Report Type: Spontaneous
  Country: MX (occurrence: MX)
  Receive Date: 20171102
  Receipt Date: 20171102
  Transmission Date: 20180321
  Serious: Yes (Death, Hospitalization, Disabling)
  Sender: FDA-Public Use
  Company Number: MX-ROCHE-2011856

PATIENT
  Age: 40 Year
  Sex: Female

DRUGS (2)
  1. AVASTIN [Suspect]
     Active Substance: BEVACIZUMAB
     Indication: BRAIN NEOPLASM
     Route: 042
     Dates: start: 201606, end: 201610
  2. CYCLOPHOSPHAMIDE. [Concomitant]
     Active Substance: CYCLOPHOSPHAMIDE
     Indication: BRAIN NEOPLASM
     Route: 042
     Dates: start: 201606, end: 201610

REACTIONS (5)
  - Asthenia [Unknown]
  - Muscle injury [Unknown]
  - Coma [Recovered/Resolved]
  - Seizure [Recovered/Resolved]
  - Bronchospasm [Recovered/Resolved]

NARRATIVE: CASE EVENT DATE: 201706
